FAERS Safety Report 17568514 (Version 2)
Quarter: 2020Q3

REPORT INFORMATION
  Report Type: Report from Study
  Country: US (occurrence: US)
  Receive Date: 20200320
  Receipt Date: 20200702
  Transmission Date: 20201102
  Serious: Yes (Hospitalization)
  Sender: FDA-Public Use
  Company Number: US-ACTELION-A-US2020-200211

PATIENT
  Sex: Male
  Weight: 3.63 kg

DRUGS (6)
  1. TADALAFIL. [Concomitant]
     Active Substance: TADALAFIL
  2. TRACLEER [Suspect]
     Active Substance: BOSENTAN
     Dosage: 5.6 MG, BID
     Route: 048
     Dates: start: 20190810, end: 20191118
  3. TRACLEER [Suspect]
     Active Substance: BOSENTAN
     Dosage: 11.2 MG, BID
     Route: 048
     Dates: start: 20190812
  4. TRACLEER [Suspect]
     Active Substance: BOSENTAN
     Dosage: 15.6 MG, BID
     Route: 048
     Dates: start: 20190916, end: 20191118
  5. TRACLEER [Suspect]
     Active Substance: BOSENTAN
     Dosage: 8 MG, BID
     Route: 048
  6. TRACLEER [Suspect]
     Active Substance: BOSENTAN
     Indication: PULMONARY HYPERTENSION
     Dosage: 16 MG, BID
     Route: 048

REACTIONS (2)
  - Hospitalisation [Unknown]
  - Liver function test increased [Unknown]
